FAERS Safety Report 21160939 (Version 1)
Quarter: 2022Q3

REPORT INFORMATION
  Report Type: Spontaneous
  Country: US (occurrence: None)
  Receive Date: 20220801
  Receipt Date: 20220801
  Transmission Date: 20221026
  Serious: Yes (Hospitalization)
  Sender: FDA-Public Use
  Company Number: None

PATIENT
  Age: 30 Year
  Sex: Male
  Weight: 109.8 kg

DRUGS (2)
  1. CITROMA MAGNESIUM CITRATE [Suspect]
     Active Substance: MAGNESIUM CITRATE
     Indication: Constipation
     Route: 048
     Dates: start: 20220725, end: 20220725
  2. CELEXA [Concomitant]
     Active Substance: CITALOPRAM HYDROBROMIDE

REACTIONS (2)
  - Diverticulitis [None]
  - Large intestine perforation [None]

NARRATIVE: CASE EVENT DATE: 20220726
